FAERS Safety Report 4412321-7 (Version None)
Quarter: 2004Q3

REPORT INFORMATION
  Report Type: 
  Country: None (occurrence: None)
  Receive Date: 20040730
  Receipt Date: 20040726
  Transmission Date: 20050211
  Serious: Yes (Death, Life-Threatening, Hospitalization)
  Sender: FDA-Public Use
  Company Number: AU-MERCK-0407AUS00094

PATIENT
  Age: 88 Year
  Sex: Female

DRUGS (1)
  1. FOSAMAX [Suspect]
     Indication: OSTEOPOROSIS
     Route: 048
     Dates: start: 20010101, end: 20040401

REACTIONS (5)
  - CARDIAC ARREST [None]
  - FALL [None]
  - GASTROINTESTINAL ULCER HAEMORRHAGE [None]
  - MYOCARDIAL INFARCTION [None]
  - POST PROCEDURAL COMPLICATION [None]
